FAERS Safety Report 8299821-7 (Version None)
Quarter: 2012Q2

REPORT INFORMATION
  Report Type: 
  Country: None (occurrence: None)
  Receive Date: 20120419
  Receipt Date: 20120406
  Transmission Date: 20120825
  Serious: Yes (Other)
  Sender: FDA-Public Use
  Company Number: US-RB-039189-12

PATIENT
  Age: 28 Year
  Sex: Male

DRUGS (1)
  1. BUPRENORPHINE [Suspect]
     Indication: PRODUCT USED FOR UNKNOWN INDICATION
     Dosage: UNKNOWN DOSAGE DETAILS
     Route: 065

REACTIONS (5)
  - EUPHORIC MOOD [None]
  - PHYSICAL ASSAULT [None]
  - THEFT [None]
  - DRUG ABUSE [None]
  - LEGAL PROBLEM [None]
